FAERS Safety Report 5941248-4 (Version None)
Quarter: 2008Q4

REPORT INFORMATION
  Report Type: 
  Country: None (occurrence: None)
  Receive Date: 20081104
  Receipt Date: 20081104
  Transmission Date: 20090506
  Serious: Yes (Disabling)
  Sender: FDA-Public Use
  Company Number: None

PATIENT
  Age: 87 Year
  Sex: Male
  Weight: 72.5755 kg

DRUGS (14)
  1. AMIODARONE HCL [Suspect]
     Dates: start: 20081023, end: 20081103
  2. AMIODARONE HCL [Suspect]
  3. AMBIEN [Concomitant]
  4. ASPIRIN [Concomitant]
  5. IRON [Concomitant]
  6. FLOMAX [Concomitant]
  7. FOLIC ACID [Concomitant]
  8. METOPROLOL TARTRATE [Concomitant]
  9. PREVACID [Concomitant]
  10. TYLENOL [Concomitant]
  11. THIAMINE HCL [Concomitant]
  12. VITAMIN B-12 [Concomitant]
  13. ZOCOR [Concomitant]
  14. ALLOPURINOL [Concomitant]

REACTIONS (1)
  - PLEURAL EFFUSION [None]
